FAERS Safety Report 4388695-2 (Version None)
Quarter: 2004Q2

REPORT INFORMATION
  Report Type: 
  Country: None (occurrence: None)
  Receive Date: 20040624
  Receipt Date: 20040609
  Transmission Date: 20050107
  Serious: Yes (Life-Threatening, Hospitalization, Disabling)
  Sender: FDA-Public Use
  Company Number: 237538

PATIENT
  Age: 63 Year
  Sex: Female
  Weight: 55 kg

DRUGS (13)
  1. KLIOVANCE (ESTRADIOL HEMIHYDRATE, NORETHISTERONE ACETATE) TABL. [Suspect]
     Indication: MENOPAUSAL DISORDER
     Dosage: 1 TAB, QD, PER ORAL
     Route: 048
     Dates: start: 19910101, end: 20040526
  2. FLUOXETINE [Concomitant]
  3. CALCICHEW D3 (COLECALCIFEROL, CALCIUM CARBONATE) [Concomitant]
  4. FERROUS SULFATE TAB [Concomitant]
  5. BALSALAZIDE (BALSALAZIDE) [Concomitant]
  6. SERETIDE ^ALLEN + HANBURYS LTD^ (FLUTICASONE PROPIONATE, SALMETEROL) [Concomitant]
  7. TIOTROPIUM BROMIDE (TIOTROPIUM BORMIDE) [Concomitant]
  8. TERBUTALINE SULFATE [Concomitant]
  9. CEFUROXIME [Concomitant]
  10. METRONIDAZOLE [Concomitant]
  11. TRAMADOL HCL [Concomitant]
  12. HYDROCORTISONE [Concomitant]
  13. IMURAN [Concomitant]

REACTIONS (6)
  - ASPIRATION [None]
  - CEREBRAL INFARCTION [None]
  - CEREBROVASCULAR ACCIDENT [None]
  - HEMIPARESIS [None]
  - POST PROCEDURAL COMPLICATION [None]
  - RESPIRATORY FAILURE [None]
